FAERS Safety Report 8966467 (Version 1)
Quarter: 2012Q4

REPORT INFORMATION
  Report Type: 
  Country: US (occurrence: US)
  Receive Date: 20121217
  Receipt Date: 20121217
  Transmission Date: 20130627
  Serious: Yes (Other)
  Sender: FDA-Public Use
  Company Number: US-ELI_LILLY_AND_COMPANY-US201212002187

PATIENT
  Sex: Male

DRUGS (2)
  1. CYMBALTA [Suspect]
     Indication: MAJOR DEPRESSION
     Dosage: 30 mg, unknown
  2. CLOZARIL [Concomitant]

REACTIONS (3)
  - Lip swelling [Unknown]
  - Mucosal discolouration [Unknown]
  - Intentional drug misuse [Unknown]
